FAERS Safety Report 7024354-5 (Version None)
Quarter: 2010Q3

REPORT INFORMATION
  Report Type: 
  Country: None (occurrence: None)
  Receive Date: 20100929
  Receipt Date: 20100915
  Transmission Date: 20110219
  Serious: Yes (Hospitalization)
  Sender: FDA-Public Use
  Company Number: 2010SP002601

PATIENT
  Age: 59 Year
  Sex: Female
  Weight: 104.3 kg

DRUGS (24)
  1. XOPENEX [Suspect]
     Indication: ASTHMA
     Dosage: 1.25 NG.3ML;PRN;INHALATION, 0.31 MG/3ML;TID;INHALATION
     Dates: end: 20100701
  2. XOPENEX [Suspect]
     Indication: RESTRICTIVE PULMONARY DISEASE
     Dosage: 1.25 NG.3ML;PRN;INHALATION, 0.31 MG/3ML;TID;INHALATION
     Dates: end: 20100701
  3. XOPENEX [Suspect]
     Indication: ASTHMA
     Dosage: 1.25 NG.3ML;PRN;INHALATION, 0.31 MG/3ML;TID;INHALATION
     Dates: start: 20100701
  4. XOPENEX [Suspect]
     Indication: RESTRICTIVE PULMONARY DISEASE
     Dosage: 1.25 NG.3ML;PRN;INHALATION, 0.31 MG/3ML;TID;INHALATION
     Dates: start: 20100701
  5. CARDIZEM CD [Concomitant]
  6. REQUIP [Concomitant]
  7. KLONOPIN [Concomitant]
  8. LASIX [Concomitant]
  9. TRAZODONE HCL [Concomitant]
  10. CELEXA [Concomitant]
  11. K-DUR [Concomitant]
  12. BONIVA [Concomitant]
  13. PREDNISONE [Concomitant]
  14. OMEPRAZOLE [Concomitant]
  15. ASPIRIN [Concomitant]
  16. ZOFRAN [Concomitant]
  17. BACLOFEN [Concomitant]
  18. KEPPRA [Concomitant]
  19. LEVEMIR [Concomitant]
  20. CALCIUM [Concomitant]
  21. IMITREX [Concomitant]
  22. LORTAB [Concomitant]
  23. FORADIL [Concomitant]
  24. PULMICORT [Concomitant]

REACTIONS (11)
  - ANAEMIA [None]
  - BLINDNESS UNILATERAL [None]
  - EYE OPERATION [None]
  - INTRAOCULAR PRESSURE INCREASED [None]
  - KIDNEY INFECTION [None]
  - MYELITIS [None]
  - THROMBOSIS [None]
  - VISUAL ACUITY REDUCED [None]
  - VITAMIN B12 DEFICIENCY [None]
  - VITAMIN C DEFICIENCY [None]
  - VITAMIN D DEFICIENCY [None]
